FAERS Safety Report 24632166 (Version 2)
Quarter: 2024Q4

REPORT INFORMATION
  Report Type: Report from Study
  Country: US (occurrence: US)
  Receive Date: 20241118
  Receipt Date: 20241216
  Transmission Date: 20250114
  Serious: No
  Sender: IPSEN BIOPHARMACEUTICALS, INC.
  Company Number: US-IPSEN Group, Research and Development-2024-23312

PATIENT
  Age: 33 Year
  Sex: Female

DRUGS (2)
  1. SOHONOS [Suspect]
     Active Substance: PALOVAROTENE
     Indication: Fibrodysplasia ossificans progressiva
     Dosage: 2 CAPSULES BY MOUTH ONCE DAILY FOR 4 WEEK
     Route: 048
     Dates: start: 202410
  2. SOHONOS [Suspect]
     Active Substance: PALOVAROTENE
     Dosage: FLARE DOSE
     Route: 048
     Dates: start: 20241023

REACTIONS (4)
  - Skin irritation [Not Recovered/Not Resolved]
  - Burning sensation [Not Recovered/Not Resolved]
  - Pruritus [Not Recovered/Not Resolved]
  - Condition aggravated [Unknown]

NARRATIVE: CASE EVENT DATE: 20241023
